FAERS Safety Report 9879696 (Version 2)
Quarter: 2014Q2

REPORT INFORMATION
  Report Type: Spontaneous
  Country: FR (occurrence: FR)
  Receive Date: 20140206
  Receipt Date: 20140408
  Transmission Date: 20141212
  Serious: Yes (Life-Threatening)
  Sender: FDA-Public Use
  Company Number: PHHY2014FR014400

PATIENT
  Age: 44 Year
  Sex: Male

DRUGS (5)
  1. TEGRETOL [Suspect]
     Indication: HEADACHE
     Dosage: UNK
     Route: 048
     Dates: start: 20131030, end: 20131122
  2. TEGRETOL [Suspect]
     Indication: TRIGEMINAL NEURALGIA
  3. TEGRETOL [Suspect]
     Indication: OFF LABEL USE
  4. LAMALINE [Suspect]
     Indication: HEADACHE
     Dosage: UNK UKN, UNK
     Route: 048
     Dates: start: 20131030, end: 20131122
  5. LAMALINE [Suspect]
     Indication: TRIGEMINAL NEURALGIA

REACTIONS (8)
  - Hepatocellular injury [Recovered/Resolved]
  - Cerebrovascular accident [Recovered/Resolved with Sequelae]
  - Quadriparesis [Not Recovered/Not Resolved]
  - Drug reaction with eosinophilia and systemic symptoms [Recovering/Resolving]
  - Leukocytosis [Unknown]
  - Rash generalised [Unknown]
  - Eosinophilia [Recovered/Resolved]
  - Inflammation [Unknown]
